FAERS Safety Report 5427240-7 (Version None)
Quarter: 2007Q3

REPORT INFORMATION
  Report Type: 
  Country: None (occurrence: None)
  Receive Date: 20070823
  Receipt Date: 20070615
  Transmission Date: 20080115
  Serious: Yes (Other)
  Sender: FDA-Public Use
  Company Number: 6035540

PATIENT
  Age: 56 Year
  Sex: Male

DRUGS (5)
  1. TERBINAFINE HYDROCHLORIDE [Suspect]
     Indication: NAIL INFECTION
     Dosage: (250 MG), ORAL
     Route: 048
     Dates: start: 20061215
  2. ATENOLOL [Concomitant]
  3. BENDROFLUMETHIAZIDE (BENDROFLUMETHIAZIDE) [Concomitant]
  4. OMEPRAZOLE [Concomitant]
  5. ACETAMINOPHEN [Concomitant]

REACTIONS (1)
  - HEPATIC STEATOSIS [None]
